FAERS Safety Report 4554042-6 (Version None)
Quarter: 2005Q1

REPORT INFORMATION
  Report Type: 
  Country: None (occurrence: None)
  Receive Date: 20050118
  Receipt Date: 20041020
  Transmission Date: 20050727
  Serious: Yes (Life-Threatening, Hospitalization, Disabling)
  Sender: FDA-Public Use
  Company Number: DE-MERCK-0410DEU00621

PATIENT
  Age: 62 Year
  Sex: Male

DRUGS (5)
  1. VIOXX [Suspect]
     Indication: MUSCULOSKELETAL PAIN
     Route: 048
     Dates: start: 20000712
  2. VIOXX [Suspect]
     Indication: PAIN
     Route: 048
     Dates: start: 20000712
  3. DILTIAZEM HYDROCHLORIDE [Concomitant]
     Route: 065
  4. OXYCODONE HYDROCHLORIDE [Concomitant]
     Route: 065
     Dates: start: 20000712
  5. SODIUM BICARBONATE AND SODIUM CHLORIDE AND POLYETHYLENE GLYCOL 3350 AN [Concomitant]
     Route: 065
     Dates: start: 20021213

REACTIONS (1)
  - MYOCARDIAL INFARCTION [None]
